FAERS Safety Report 10254912 (Version 1)
Quarter: 2014Q2

REPORT INFORMATION
  Report Type: Spontaneous
  Country: US (occurrence: US)
  Receive Date: 20140624
  Receipt Date: 20140624
  Transmission Date: 20141212
  Serious: Yes (Hospitalization, Other)
  Sender: FDA-Public Use
  Company Number: US-AMGEN INC.-USASP2014045830

PATIENT
  Age: 82 Year
  Sex: Male

DRUGS (1)
  1. PROLIA [Suspect]
     Indication: PRODUCT USED FOR UNKNOWN INDICATION
     Route: 065

REACTIONS (7)
  - Myocardial infarction [Unknown]
  - Hypoaesthesia [Unknown]
  - Skin exfoliation [Unknown]
  - Dyspnoea [Not Recovered/Not Resolved]
  - Back pain [Unknown]
  - Rash [Unknown]
  - Pain in extremity [Unknown]
